FAERS Safety Report 16878113 (Version 1)
Quarter: 2019Q4

REPORT INFORMATION
  Report Type: Spontaneous
  Country: NO (occurrence: NO)
  Receive Date: 20191002
  Receipt Date: 20191002
  Transmission Date: 20200122
  Serious: Yes (Other)
  Sender: FDA-Public Use
  Company Number: NO-009507513-1910NOR001430

PATIENT
  Sex: Male

DRUGS (1)
  1. LETERMOVIR [Suspect]
     Active Substance: LETERMOVIR
     Indication: ANTIVIRAL PROPHYLAXIS
     Dosage: 240 MILLIGRAM, QD
     Route: 048

REACTIONS (2)
  - Graft versus host disease in gastrointestinal tract [Unknown]
  - Drug ineffective [Unknown]
